FAERS Safety Report 10441034 (Version 1)
Quarter: 2014Q3

REPORT INFORMATION
  Report Type: Spontaneous
  Country: US (occurrence: None)
  Receive Date: 20140905
  Receipt Date: 20140905
  Transmission Date: 20150326
  Serious: Yes (Other)
  Sender: FDA-Public Use
  Company Number: 2014AP004358

PATIENT
  Sex: Female

DRUGS (2)
  1. ALENDRONATE SODIUM (ALENDRONATE) TABLET [Suspect]
     Active Substance: ALENDRONATE SODIUM
     Indication: OSTEOPOROSIS
     Dosage: UNK
     Dates: start: 20000807, end: 20110314
  2. FOSAMAX [Suspect]
     Active Substance: ALENDRONATE SODIUM
     Indication: OSTEOPOROSIS
     Dosage: UNK

REACTIONS (6)
  - Emotional distress [None]
  - Bone disorder [None]
  - Pain [None]
  - Mental impairment [None]
  - Femur fracture [None]
  - Multiple injuries [None]

NARRATIVE: CASE EVENT DATE: 20110401
